FAERS Safety Report 10764774 (Version 1)
Quarter: 2015Q1

REPORT INFORMATION
  Report Type: Spontaneous
  Country: US (occurrence: None)
  Receive Date: 20150204
  Receipt Date: 20150204
  Transmission Date: 20150721
  Serious: Yes (Death)
  Sender: FDA-Public Use
  Company Number: None

PATIENT
  Age: 48 Year
  Sex: Male
  Weight: 67.2 kg

DRUGS (1)
  1. BENAZEPRI [Suspect]
     Active Substance: BENAZEPRIL\BENAZEPRIL HYDROCHLORIDE
     Indication: HYPERTENSION
     Route: 048
     Dates: start: 20140816, end: 20150117

REACTIONS (2)
  - Mouth swelling [None]
  - Swollen tongue [None]

NARRATIVE: CASE EVENT DATE: 20150117
